FAERS Safety Report 8105297-2 (Version None)
Quarter: 2012Q1

REPORT INFORMATION
  Report Type: 
  Country: None (occurrence: None)
  Receive Date: 20120201
  Receipt Date: 20120127
  Transmission Date: 20120608
  Serious: Yes (Other)
  Sender: FDA-Public Use
  Company Number: JP-PFIZER INC-2012023733

PATIENT
  Age: 67 Year
  Sex: Male

DRUGS (2)
  1. FENTANYL-100 [Concomitant]
     Indication: SPINAL LIGAMENT OSSIFICATION
     Dosage: UNK
  2. LYRICA [Suspect]
     Indication: SPINAL LIGAMENT OSSIFICATION
     Dosage: UNK
     Route: 048

REACTIONS (1)
  - ALTERED STATE OF CONSCIOUSNESS [None]
